FAERS Safety Report 12101023 (Version 3)
Quarter: 2017Q1

REPORT INFORMATION
  Report Type: Spontaneous
  Country: US (occurrence: US)
  Receive Date: 20160222
  Receipt Date: 20170301
  Transmission Date: 20170428
  Serious: Yes (Hospitalization)
  Sender: FDA-Public Use
  Company Number: US-ACTELION-A-US2016-131495

PATIENT
  Age: 69 Year
  Sex: Female

DRUGS (3)
  1. PROLIA [Concomitant]
     Active Substance: DENOSUMAB
  2. OPSUMIT [Suspect]
     Active Substance: MACITENTAN
     Indication: PULMONARY ARTERIAL HYPERTENSION
     Dosage: 10 MG, UNK
     Route: 048
     Dates: start: 20150114
  3. MORPHINE [Concomitant]
     Active Substance: MORPHINE

REACTIONS (6)
  - Medical device site infection [Recovered/Resolved]
  - Pain [Not Recovered/Not Resolved]
  - Transfusion [Recovering/Resolving]
  - Sickle cell anaemia with crisis [Recovering/Resolving]
  - Blood count abnormal [Recovering/Resolving]
  - Medical device removal [Recovered/Resolved]

NARRATIVE: CASE EVENT DATE: 20160123
